FAERS Safety Report 7247395-1 (Version None)
Quarter: 2011Q1

REPORT INFORMATION
  Report Type: 
  Country: None (occurrence: None)
  Receive Date: 20110127
  Receipt Date: 20110118
  Transmission Date: 20110831
  Serious: Yes (Other)
  Sender: FDA-Public Use
  Company Number: PHHY2010US46182

PATIENT
  Sex: Female

DRUGS (11)
  1. EXTAVIA [Suspect]
     Indication: MULTIPLE SCLEROSIS
     Dosage: 0.25 MG, QOD
     Route: 058
     Dates: start: 20100618
  2. JANUVIA [Concomitant]
     Indication: DIABETES MELLITUS
  3. LIPITOR [Concomitant]
     Dosage: UNK
  4. ACETAMINOPHEN [Concomitant]
  5. INSULIN [Concomitant]
     Dosage: UNK,UNK
  6. HYDROCHLOROTHIAZIDE [Concomitant]
     Dosage: UNK
  7. RITALIN [Concomitant]
     Dosage: UNK,UNK
  8. LISINOPRIL [Concomitant]
  9. METFORMIN [Concomitant]
     Dosage: UNK
  10. ASA [Concomitant]
     Dosage: UNK
  11. GLIMEPIRIDE [Concomitant]

REACTIONS (17)
  - LIVER FUNCTION TEST ABNORMAL [None]
  - EYE IRRITATION [None]
  - HYPERHIDROSIS [None]
  - INJECTION SITE PAIN [None]
  - VITREOUS FLOATERS [None]
  - ERYTHEMA [None]
  - WEIGHT INCREASED [None]
  - PARAESTHESIA [None]
  - RASH PRURITIC [None]
  - CHILLS [None]
  - TEMPERATURE INTOLERANCE [None]
  - INJECTION SITE MASS [None]
  - PYREXIA [None]
  - GLYCOSYLATED HAEMOGLOBIN INCREASED [None]
  - ROTATOR CUFF SYNDROME [None]
  - FEELING ABNORMAL [None]
  - HYPOAESTHESIA FACIAL [None]
